FAERS Safety Report 22990136 (Version 4)
Quarter: 2023Q4

REPORT INFORMATION
  Report Type: Spontaneous
  Country: BR (occurrence: BR)
  Receive Date: 20230927
  Receipt Date: 20231206
  Transmission Date: 20240109
  Serious: No
  Sender: FDA-Public Use
  Company Number: BR-SA-SAC20230926000309

PATIENT
  Age: 70 Year
  Sex: Female
  Weight: 72 kg

DRUGS (1)
  1. LANTUS [Suspect]
     Active Substance: INSULIN GLARGINE
     Indication: Diabetes mellitus
     Dosage: 64 U, QD
     Route: 058
     Dates: start: 2021

REACTIONS (2)
  - Injection site haemorrhage [Recovering/Resolving]
  - Device mechanical issue [Unknown]

NARRATIVE: CASE EVENT DATE: 20230917
